FAERS Safety Report 4616389-4 (Version None)
Quarter: 2005Q1

REPORT INFORMATION
  Report Type: 
  Country: None (occurrence: None)
  Receive Date: 20050321
  Receipt Date: 20050309
  Transmission Date: 20050727
  Serious: Yes (Other)
  Sender: FDA-Public Use
  Company Number: 2005043920

PATIENT
  Age: 15 Year
  Sex: Female
  Weight: 54.4316 kg

DRUGS (1)
  1. DEPO-PROVERA [Suspect]
     Indication: ILL-DEFINED DISORDER
     Dosage: 150 MG (150 MG, 1ST AND MOST RECENT INJECTION.)
     Dates: start: 20050301, end: 20050301

REACTIONS (2)
  - BLOOD URINE PRESENT [None]
  - DYSURIA [None]
